FAERS Safety Report 8555668-5 (Version None)
Quarter: 2012Q3

REPORT INFORMATION
  Report Type: 
  Country: None (occurrence: None)
  Receive Date: 20120801
  Receipt Date: 20120726
  Transmission Date: 20120928
  Serious: Yes (Other)
  Sender: FDA-Public Use
  Company Number: US-AMGEN-USASP2011000144

PATIENT
  Age: 84 Year
  Sex: Female
  Weight: 75.283 kg

DRUGS (23)
  1. OCUVITE                            /01053801/ [Concomitant]
     Dosage: UNK UNK, BID
     Route: 048
  2. FAMOTIDINE [Concomitant]
     Dosage: 20 MG, BID
     Dates: start: 20111223
  3. DIOVAN HCT [Concomitant]
     Dosage: 325 MG, QD
     Route: 048
     Dates: end: 20110124
  4. TAPAZOLE [Concomitant]
     Indication: GOITRE
  5. NORVASC [Concomitant]
     Dosage: 2.5 MG, QD
     Route: 048
     Dates: end: 20110124
  6. CALCIUM WITH VITAMIN D             /00944201/ [Concomitant]
     Dosage: UNK UNK, QD
     Route: 048
  7. LIPITOR [Concomitant]
     Dosage: 10 MG, QD
     Route: 048
  8. DEXAMETHASONE [Concomitant]
     Dosage: 4 MG, BID
     Route: 048
     Dates: end: 20110721
  9. LOTREL [Concomitant]
     Dosage: 25 MG, QD
     Route: 048
     Dates: end: 20110721
  10. FLONASE [Concomitant]
  11. PEPCID [Concomitant]
     Dosage: 20 MG, PRN
     Route: 048
  12. M.V.I. [Concomitant]
     Dosage: 1 DF, QD
     Route: 048
  13. TYLENOL (CAPLET) [Concomitant]
     Dosage: 325 MG, PRN
     Route: 048
  14. AMLODIPINE BESYLATE [Concomitant]
     Dosage: 5 MG, QD
     Route: 048
     Dates: end: 20110721
  15. NPLATE [Suspect]
     Indication: IDIOPATHIC THROMBOCYTOPENIC PURPURA
     Dosage: 416 MUG, QWK
     Route: 058
     Dates: start: 20101213, end: 20110127
  16. ANTIBIOTIC                         /00011701/ [Concomitant]
     Dosage: 1 DF, BID
  17. LANTUS [Concomitant]
     Dosage: 30 UNIT, QD
     Route: 058
  18. LONOX [Concomitant]
     Dosage: UNK UNK, PRN
     Route: 048
  19. COZAAR [Concomitant]
     Dosage: 50 MG, QD
     Route: 048
     Dates: end: 20110721
  20. KLOR-CON M20 [Concomitant]
     Dosage: 20 MEQ, BID
     Route: 048
  21. INSULIN [Concomitant]
     Dosage: UNK
  22. BUMETANIDE [Concomitant]
     Dosage: 1 MG, QD
     Route: 048
  23. RED BLOOD CELLS [Concomitant]
     Dosage: 2 UNIT, ONE TIME DOSE
     Route: 042
     Dates: start: 20110104

REACTIONS (2)
  - THROMBOCYTOSIS [None]
  - DRUG INEFFECTIVE [None]
